FAERS Safety Report 22191829 (Version 1)
Quarter: 2023Q2

REPORT INFORMATION
  Report Type: Spontaneous
  Country: NL (occurrence: NL)
  Receive Date: 20230410
  Receipt Date: 20230410
  Transmission Date: 20230722
  Serious: Yes (Other)
  Sender: FDA-Public Use
  Company Number: None

PATIENT
  Sex: Male
  Weight: 90 kg

DRUGS (1)
  1. HYDROCHLOROTHIAZIDE\VALSARTAN [Suspect]
     Active Substance: HYDROCHLOROTHIAZIDE\VALSARTAN
     Indication: Hypertension
     Dosage: VALSARTAN/HYDROCHLOORTHIAZIDE TAB OMH 160/25MG / BRAND NAME NOT SPECIFIED
     Route: 065
     Dates: start: 20071012

REACTIONS (1)
  - Basal cell carcinoma [Not Recovered/Not Resolved]
